FAERS Safety Report 8292452-4 (Version None)
Quarter: 2012Q2

REPORT INFORMATION
  Report Type: 
  Country: None (occurrence: None)
  Receive Date: 20120417
  Receipt Date: 20120409
  Transmission Date: 20120825
  Serious: Yes (Hospitalization, Other)
  Sender: FDA-Public Use
  Company Number: BR-ROCHE-1015717

PATIENT
  Sex: Female

DRUGS (7)
  1. XOLAIR [Suspect]
     Indication: ASTHMA
     Dates: start: 20110715
  2. XOLAIR [Suspect]
     Dates: start: 20111117
  3. FLUTICASONE PROPIONATE/SALMETEROL [Concomitant]
  4. CAPTOPRIL [Concomitant]
  5. ALBUTEROL [Concomitant]
  6. BEROTEC [Concomitant]
  7. ATROVENT [Concomitant]

REACTIONS (7)
  - URINE OUTPUT DECREASED [None]
  - SYNCOPE [None]
  - BLOOD PRESSURE INCREASED [None]
  - ABDOMINAL PAIN [None]
  - WHEEZING [None]
  - NEPHROLITHIASIS [None]
  - GASTROENTERITIS [None]
